FAERS Safety Report 4305883-1 (Version None)
Quarter: 2004Q1

REPORT INFORMATION
  Report Type: 
  Country: None (occurrence: None)
  Receive Date: 20040226
  Receipt Date: 20040223
  Transmission Date: 20041129
  Serious: Yes (Other)
  Sender: FDA-Public Use
  Company Number: WAES 0402USA01728

PATIENT
  Age: 63 Year
  Sex: Male
  Weight: 116 kg

DRUGS (5)
  1. ASPIRIN [Concomitant]
     Route: 048
  2. PRINIVIL [Suspect]
     Indication: HYPERTENSION
     Route: 048
     Dates: start: 20030908
  3. PRINIVIL [Suspect]
     Route: 048
     Dates: end: 20031012
  4. PRINIVIL [Suspect]
     Route: 048
     Dates: start: 20031013, end: 20031117
  5. VERAPAMIL [Concomitant]
     Route: 048
     Dates: start: 20031117

REACTIONS (4)
  - DEPRESSION [None]
  - FATIGUE [None]
  - LISTLESS [None]
  - NASOPHARYNGITIS [None]
